FAERS Safety Report 13801287 (Version 1)
Quarter: 2017Q3

REPORT INFORMATION
  Report Type: Spontaneous
  Country: CN (occurrence: CN)
  Receive Date: 20170727
  Receipt Date: 20170727
  Transmission Date: 20171127
  Serious: Yes (Life-Threatening)
  Sender: FDA-Public Use
  Company Number: CN-009507513-1707CHN010552

PATIENT
  Age: 49 Year
  Sex: Male

DRUGS (3)
  1. TIENAM [Suspect]
     Active Substance: CILASTATIN SODIUM\IMIPENEM
     Indication: SEPTIC SHOCK
     Dosage: 1 G, TID
     Route: 041
     Dates: start: 20170430, end: 20170504
  2. NOREPINEPHRINE BITARTRATE. [Suspect]
     Active Substance: NOREPINEPHRINE BITARTRATE
     Indication: SHOCK
     Dosage: 32 MG, ONCE IN EVERY SIX DAYS
     Route: 041
     Dates: start: 20170503, end: 20170504
  3. NOREPINEPHRINE BITARTRATE. [Suspect]
     Active Substance: NOREPINEPHRINE BITARTRATE
     Indication: HYPOTENSION

REACTIONS (4)
  - Musculoskeletal stiffness [Recovering/Resolving]
  - Eye disorder [Recovering/Resolving]
  - Confusional state [Recovering/Resolving]
  - Cyanosis [Recovering/Resolving]

NARRATIVE: CASE EVENT DATE: 20170504
